FAERS Safety Report 26092431 (Version 2)
Quarter: 2025Q4

REPORT INFORMATION
  Report Type: Spontaneous
  Country: CN (occurrence: CN)
  Receive Date: 20251126
  Receipt Date: 20251201
  Transmission Date: 20260118
  Serious: Yes (Life-Threatening, Hospitalization, Other)
  Sender: BAYER HEALTHCARE PHARMACEUTICALS INC.
  Company Number: CN-BAYER-2025A156074

PATIENT
  Age: 42 Year
  Sex: Female
  Weight: 60 kg

DRUGS (2)
  1. AVELOX [Suspect]
     Active Substance: MOXIFLOXACIN HYDROCHLORIDE
     Indication: Febrile infection
     Dosage: 0.4 G, QD
     Dates: start: 20251120, end: 20251120
  2. AVELOX [Suspect]
     Active Substance: MOXIFLOXACIN HYDROCHLORIDE
     Indication: Antiinflammatory therapy

REACTIONS (9)
  - Anaphylactic shock [Recovering/Resolving]
  - Dizziness [Recovering/Resolving]
  - Vision blurred [None]
  - Hypoaesthesia [None]
  - Chest discomfort [Recovered/Resolved]
  - Blood pressure decreased [Recovering/Resolving]
  - Respiratory rate increased [None]
  - Product prescribing issue [None]
  - Product use in unapproved indication [None]

NARRATIVE: CASE EVENT DATE: 20251120
